FAERS Safety Report 16266946 (Version 6)
Quarter: 2021Q2

REPORT INFORMATION
  Report Type: Spontaneous
  Country: US (occurrence: US)
  Receive Date: 20190502
  Receipt Date: 20210628
  Transmission Date: 20210716
  Serious: Yes (Hospitalization)
  Sender: FDA-Public Use
  Company Number: US-VIFOR (INTERNATIONAL) INC.-VIT-2019-04035

PATIENT
  Age: 61 Year
  Sex: Female

DRUGS (9)
  1. VELTASSA [Suspect]
     Active Substance: PATIROMER
     Indication: HYPERKALAEMIA
     Route: 048
     Dates: start: 201902
  2. COREG [Concomitant]
     Active Substance: CARVEDILOL
  3. ATORVASTATIN CALCIUM. [Concomitant]
     Active Substance: ATORVASTATIN CALCIUM
  4. LISINOPRIL. [Concomitant]
     Active Substance: LISINOPRIL
  5. HYDRALAZINE HCL [Concomitant]
     Active Substance: HYDRALAZINE HYDROCHLORIDE
  6. VELTASSA [Suspect]
     Active Substance: PATIROMER
     Route: 048
     Dates: start: 20190305
  7. TRESIBA [Concomitant]
     Active Substance: INSULIN DEGLUDEC
  8. DEMADEX [Concomitant]
     Active Substance: TORSEMIDE
  9. CLONIDINE HCL [Concomitant]
     Active Substance: CLONIDINE HYDROCHLORIDE

REACTIONS (4)
  - Dehydration [Unknown]
  - Loss of consciousness [Unknown]
  - Product dose omission issue [Unknown]
  - Anaemia [Unknown]

NARRATIVE: CASE EVENT DATE: 2019
